FAERS Safety Report 17799660 (Version 1)
Quarter: 2020Q2

REPORT INFORMATION
  Report Type: Spontaneous
  Country: GB (occurrence: GB)
  Receive Date: 20200518
  Receipt Date: 20200518
  Transmission Date: 20200714
  Serious: Yes (Other)
  Sender: FDA-Public Use
  Company Number: NVSC2020GB131483

PATIENT
  Age: 84 Year
  Sex: Female

DRUGS (1)
  1. RIVASTIGMINE. [Suspect]
     Active Substance: RIVASTIGMINE
     Indication: PRODUCT USED FOR UNKNOWN INDICATION
     Dosage: UNK
     Route: 065

REACTIONS (7)
  - Blood pressure fluctuation [Unknown]
  - Decreased appetite [Unknown]
  - Heart rate irregular [Unknown]
  - Skin reaction [Unknown]
  - Malaise [Unknown]
  - Hallucination [Unknown]
  - Anxiety [Unknown]
